FAERS Safety Report 4580215-2 (Version None)
Quarter: 2005Q1

REPORT INFORMATION
  Report Type: 
  Country: None (occurrence: None)
  Receive Date: 20050211
  Receipt Date: 20030507
  Transmission Date: 20050727
  Serious: Yes (Other)
  Sender: FDA-Public Use
  Company Number: GXKR2003JP00583

PATIENT
  Age: 66 Year
  Sex: Female

DRUGS (7)
  1. DICLOFENAC (NGX) (DICLOFENAC) UNKNOWN [Suspect]
     Indication: RHEUMATOID ARTHRITIS
     Dosage: 75 MG, ORAL
     Route: 048
  2. TAMOXIFEN (TAMOXIFEN) [Concomitant]
  3. RETINOL PALMITATE (RETINOL PALMITATE) [Concomitant]
  4. METHOTREXATE [Concomitant]
  5. VITAMIN D [Concomitant]
  6. VITAMIN C (ASCORBIC ACID) [Concomitant]
  7. TOCOPHEROL (TOCOPHEROL) [Concomitant]

REACTIONS (1)
  - LABORATORY TEST INTERFERENCE [None]
